FAERS Safety Report 10469498 (Version 2)
Quarter: 2014Q3

REPORT INFORMATION
  Report Type: Spontaneous
  Country: US (occurrence: None)
  Receive Date: 20140919
  Receipt Date: 20140925
  Transmission Date: 20150326
  Serious: Yes (Other)
  Sender: FDA-Public Use
  Company Number: 2014-US-011640

PATIENT
  Age: 52 Year
  Sex: Female

DRUGS (1)
  1. XYREM [Suspect]
     Active Substance: SODIUM OXYBATE
     Indication: NARCOLEPSY
     Dosage: DOSE ADJUSTMENTS, ORAL
     Route: 048
     Dates: start: 201407, end: 2014

REACTIONS (4)
  - Unevaluable event [None]
  - Blood pressure increased [None]
  - Condition aggravated [None]
  - Convulsion [None]

NARRATIVE: CASE EVENT DATE: 2014
